FAERS Safety Report 22240616 (Version 1)
Quarter: 2023Q2

REPORT INFORMATION
  Report Type: Report from Study
  Country: GB (occurrence: GB)
  Receive Date: 20230421
  Receipt Date: 20230421
  Transmission Date: 20230721
  Serious: Yes (Hospitalization)
  Sender: FDA-Public Use
  Company Number: GB-MYLANLABS-2023M1042983

PATIENT
  Age: 5 Decade
  Sex: Female

DRUGS (2)
  1. CLOZAPINE [Suspect]
     Active Substance: CLOZAPINE
     Indication: Product used for unknown indication
     Dosage: 250 MILLIGRAM, QD
     Route: 065
  2. CLOZAPINE [Suspect]
     Active Substance: CLOZAPINE
     Dosage: 125 MILLIGRAM, QD (CLOZAPINE WAS CONTINUED AT HALF THE DOSE)
     Route: 065

REACTIONS (4)
  - Gastrointestinal hypomotility [Recovering/Resolving]
  - Urinary tract obstruction [Recovering/Resolving]
  - Constipation [Recovering/Resolving]
  - Chronic kidney disease [Not Recovered/Not Resolved]
